FAERS Safety Report 20924589 (Version 1)
Quarter: 2022Q2

REPORT INFORMATION
  Report Type: Spontaneous
  Country: US (occurrence: US)
  Receive Date: 20220607
  Receipt Date: 20220607
  Transmission Date: 20220721
  Serious: No
  Sender: FDA-Public Use
  Company Number: US-PFIZER INC-202200797780

PATIENT
  Age: 71 Year
  Sex: Female
  Weight: 52.16 kg

DRUGS (1)
  1. PAXLOVID [Suspect]
     Active Substance: NIRMATRELVIR\RITONAVIR
     Indication: COVID-19 treatment
     Dosage: UNK

REACTIONS (4)
  - Diarrhoea [Not Recovered/Not Resolved]
  - Taste disorder [Unknown]
  - Dysgeusia [Unknown]
  - Product taste abnormal [Unknown]

NARRATIVE: CASE EVENT DATE: 20220601
